FAERS Safety Report 18755052 (Version 1)
Quarter: 2021Q1

REPORT INFORMATION
  Report Type: Spontaneous
  Country: ZA (occurrence: ZA)
  Receive Date: 20210119
  Receipt Date: 20210119
  Transmission Date: 20210419
  Serious: Yes (Hospitalization)
  Sender: FDA-Public Use
  Company Number: ZA-NOVOPROD-779965

PATIENT
  Sex: Female

DRUGS (4)
  1. ESTROFEM (ESTRADIOL HEMIHYDRATE) [Suspect]
     Active Substance: ESTRADIOL HEMIHYDRATE
     Indication: HORMONE REPLACEMENT THERAPY
     Dosage: 1MG DAILY
     Route: 048
  2. ALPRAZOLAM MYLAN [Concomitant]
     Active Substance: ALPRAZOLAM
     Dosage: 1 MG
  3. PREXUM PLUS [INDAPAMIDE;PERINDOPRIL] [Concomitant]
     Active Substance: INDAPAMIDE\PERINDOPRIL
     Dosage: 5/1.25MG
  4. ZOLPIHEXAL [Concomitant]
     Active Substance: ZOLPIDEM TARTRATE
     Dosage: 10MG

REACTIONS (1)
  - Spinal operation [Unknown]
